FAERS Safety Report 9209579 (Version 2)
Quarter: 2013Q3

REPORT INFORMATION
  Report Type: Report from Study
  Country: US (occurrence: US)
  Receive Date: 20130404
  Receipt Date: 20130809
  Transmission Date: 20140515
  Serious: Yes (Death)
  Sender: FDA-Public Use
  Company Number: PHEH2013US007574

PATIENT
  Sex: Male

DRUGS (19)
  1. GILENYA [Suspect]
     Indication: MULTIPLE SCLEROSIS
     Dosage: 0.5 MG, QD
     Route: 048
  2. SOTALOL HCL [Concomitant]
     Dosage: 80 MG, UNK
  3. TOPIRAMATE [Concomitant]
     Dosage: 25 MG, UNK
  4. TRAZODONE [Concomitant]
     Dosage: 50 MG, UNK
  5. ASPIRIN [Concomitant]
     Dosage: 325 MG, UNK
  6. VITAMIN B12 [Concomitant]
  7. BENICAR [Concomitant]
  8. COREG [Concomitant]
  9. GLIMEPIRIDE [Concomitant]
  10. MIDRIN [Concomitant]
  11. LIPITOR [Concomitant]
  12. MIRAPEX [Concomitant]
  13. OMEPRAZOLE [Concomitant]
  14. FERROUS FUMARATE [Concomitant]
  15. POTASSIUM [Concomitant]
  16. PRODRIN [Concomitant]
  17. CALCIUM CITRATE [Concomitant]
  18. CENTRUM SILVER [Concomitant]
  19. COMPLEX B                          /00653501/ [Concomitant]

REACTIONS (1)
  - Death [Fatal]
